FAERS Safety Report 25617250 (Version 2)
Quarter: 2025Q3

REPORT INFORMATION
  Report Type: Spontaneous
  Country: US (occurrence: US)
  Receive Date: 20250729
  Receipt Date: 20250730
  Transmission Date: 20251020
  Serious: Yes (Other)
  Sender: PFIZER
  Company Number: US-PFIZER INC-202500150286

PATIENT
  Age: 88 Year
  Sex: Female

DRUGS (8)
  1. IBRANCE [Suspect]
     Active Substance: PALBOCICLIB
     Route: 048
     Dates: start: 20250320, end: 20250724
  2. ASPIRIN [Concomitant]
     Active Substance: ASPIRIN
  3. ANASTROZOLE [Concomitant]
     Active Substance: ANASTROZOLE
  4. FAMOTIDINE [Concomitant]
     Active Substance: FAMOTIDINE
  5. LEVOTHYROXINE [Concomitant]
     Active Substance: LEVOTHYROXINE
  6. ONDANSETRON [Concomitant]
     Active Substance: ONDANSETRON
  7. SERTRALINE [Concomitant]
     Active Substance: SERTRALINE HYDROCHLORIDE
  8. HAIR SKIN NAILS [Concomitant]

REACTIONS (2)
  - Adenocarcinoma [Unknown]
  - Malignant neoplasm progression [Unknown]

NARRATIVE: CASE EVENT DATE: 20250724
